FAERS Safety Report 5333422-5 (Version None)
Quarter: 2007Q2

REPORT INFORMATION
  Report Type: 
  Country: None (occurrence: None)
  Receive Date: 20070522
  Receipt Date: 20070522
  Transmission Date: 20071010
  Serious: Yes (Hospitalization)
  Sender: FDA-Public Use
  Company Number: None

PATIENT
  Age: 10 Year
  Sex: Male
  Weight: 29.4838 kg

DRUGS (1)
  1. AUGMENTIN ES-600 [Suspect]
     Indication: INFECTION
     Dosage: 10ML BID PO
     Route: 048
     Dates: start: 20070319, end: 20070323

REACTIONS (3)
  - DRUG INTOLERANCE [None]
  - DYSPEPSIA [None]
  - OESOPHAGEAL PAIN [None]
